FAERS Safety Report 16622637 (Version 1)
Quarter: 2019Q3

REPORT INFORMATION
  Report Type: Spontaneous
  Country: US (occurrence: US)
  Receive Date: 20190723
  Receipt Date: 20190723
  Transmission Date: 20191004
  Serious: Yes (Other)
  Sender: FDA-Public Use
  Company Number: US-OTSUKA-2019_009137

PATIENT
  Age: 65 Year
  Sex: Female

DRUGS (5)
  1. VRAYLAR [Suspect]
     Active Substance: CARIPRAZINE
     Indication: DEPRESSION
     Dosage: UNK
     Route: 065
     Dates: end: 20190320
  2. LEXAPRO [Concomitant]
     Active Substance: ESCITALOPRAM OXALATE
     Indication: PRODUCT USED FOR UNKNOWN INDICATION
     Dosage: UNK
     Route: 065
  3. REXULTI [Suspect]
     Active Substance: BREXPIPRAZOLE
     Indication: DEPRESSION
     Dosage: 1 MG, UNK
     Route: 065
     Dates: start: 20190216, end: 20190314
  4. ABILIFY [Suspect]
     Active Substance: ARIPIPRAZOLE
     Indication: DEPRESSION
     Dosage: 5 MG, UNK
     Route: 065
     Dates: start: 2011, end: 201508
  5. ARIPIPRAZOLE. [Suspect]
     Active Substance: ARIPIPRAZOLE
     Indication: PRODUCT USED FOR UNKNOWN INDICATION
     Dosage: 10 MG, UNK
     Route: 065
     Dates: start: 20150531

REACTIONS (7)
  - Mental fatigue [Recovering/Resolving]
  - Euphoric mood [Recovered/Resolved]
  - Suicidal ideation [Recovered/Resolved]
  - Economic problem [Unknown]
  - Lymphoma [Recovering/Resolving]
  - Weight increased [Recovered/Resolved]
  - Weight increased [Recovered/Resolved]

NARRATIVE: CASE EVENT DATE: 2015
